FAERS Safety Report 19623461 (Version 1)
Quarter: 2021Q3

REPORT INFORMATION
  Report Type: Spontaneous
  Country: US (occurrence: US)
  Receive Date: 20210728
  Receipt Date: 20210728
  Transmission Date: 20211014
  Serious: Yes (Other)
  Sender: FDA-Public Use
  Company Number: NVSC2021US162524

PATIENT
  Sex: Female

DRUGS (3)
  1. HIZENTRA [Suspect]
     Active Substance: HUMAN IMMUNOGLOBULIN G
     Indication: IMMUNODEFICIENCY COMMON VARIABLE
     Dosage: 12 G, QW (0.2 GM/ML)
     Route: 058
     Dates: start: 20201111
  2. AFINITOR [Suspect]
     Active Substance: EVEROLIMUS
     Indication: PRODUCT USED FOR UNKNOWN INDICATION
     Dosage: UNK
     Route: 065
  3. HIZENTRA [Suspect]
     Active Substance: HUMAN IMMUNOGLOBULIN G
     Indication: MENINGEAL NEOPLASM
     Dosage: 3 G, QW  (0.2 GM/ML)
     Route: 058
     Dates: start: 20201111

REACTIONS (5)
  - Decreased appetite [Unknown]
  - Joint swelling [Unknown]
  - Headache [Unknown]
  - Brain cancer metastatic [Unknown]
  - Peripheral swelling [Unknown]
